FAERS Safety Report 4429835-6 (Version None)
Quarter: 2004Q3

REPORT INFORMATION
  Report Type: 
  Country: None (occurrence: None)
  Receive Date: 20040818
  Receipt Date: 20040818
  Transmission Date: 20050211
  Serious: Yes (Life-Threatening)
  Sender: FDA-Public Use
  Company Number: None

PATIENT
  Age: 75 Year
  Sex: Male
  Weight: 57 kg

DRUGS (1)
  1. BENZOCAINE 20% HURRICAINE [Suspect]
     Indication: ANAESTHESIA
     Dosage: ONCE ORAL
     Route: 048
     Dates: start: 20040525, end: 20040525

REACTIONS (3)
  - ACQUIRED METHAEMOGLOBINAEMIA [None]
  - ANAESTHETIC COMPLICATION [None]
  - CYANOSIS [None]
